FAERS Safety Report 12448442 (Version 3)
Quarter: 2016Q2

REPORT INFORMATION
  Report Type: Report from Study
  Country: BR (occurrence: BR)
  Receive Date: 20160608
  Receipt Date: 20160621
  Transmission Date: 20160815
  Serious: Yes (Other)
  Sender: FDA-Public Use
  Company Number: PHHY2016BR075525

PATIENT
  Sex: Female
  Weight: 46 kg

DRUGS (1)
  1. OMNITROPE [Suspect]
     Active Substance: SOMATROPIN
     Indication: GROWTH HORMONE DEFICIENCY
     Dosage: 0.6 MG, UNK
     Route: 058

REACTIONS (4)
  - Blood glucose increased [Unknown]
  - Device issue [Unknown]
  - 17-hydroxyprogesterone increased [Unknown]
  - Ear infection [Not Recovered/Not Resolved]
